FAERS Safety Report 17782747 (Version 1)
Quarter: 2020Q2

REPORT INFORMATION
  Report Type: Report from Study
  Country: US (occurrence: US)
  Receive Date: 20200514
  Receipt Date: 20200514
  Transmission Date: 20200714
  Serious: Yes (Hospitalization, Other)
  Sender: FDA-Public Use
  Company Number: US-EISAI MEDICAL RESEARCH-EC-2017-033876

PATIENT
  Age: 47 Year
  Sex: Male
  Weight: 97 kg

DRUGS (36)
  1. PRAVASTATIN SODIUM. [Concomitant]
     Active Substance: PRAVASTATIN SODIUM
  2. LENVIMA [Suspect]
     Active Substance: LENVATINIB
     Route: 048
     Dates: start: 201801, end: 201811
  3. METFORMIN HCL [Concomitant]
     Active Substance: METFORMIN HYDROCHLORIDE
  4. SERTRALINE HCL [Concomitant]
     Active Substance: SERTRALINE HYDROCHLORIDE
  5. HYDROCHLOROTHIAZIDE. [Concomitant]
     Active Substance: HYDROCHLOROTHIAZIDE
  6. ULESFIA [Concomitant]
     Active Substance: BENZYL ALCOHOL
  7. INLYTA [Concomitant]
     Active Substance: AXITINIB
  8. LENVIMA [Suspect]
     Active Substance: LENVATINIB
     Indication: RENAL CANCER
     Route: 048
     Dates: start: 20171128, end: 20171231
  9. LENVIMA [Suspect]
     Active Substance: LENVATINIB
     Route: 048
  10. AMITRIPTYLINE HCL [Concomitant]
     Active Substance: AMITRIPTYLINE
  11. LENVIMA [Suspect]
     Active Substance: LENVATINIB
     Route: 048
     Dates: start: 2018, end: 2019
  12. KRILL OIL [Concomitant]
     Active Substance: DIETARY SUPPLEMENT\KRILL OIL
  13. LIDOCAINE HCL [Concomitant]
     Active Substance: LIDOCAINE HYDROCHLORIDE
  14. ADVIL [Concomitant]
     Active Substance: IBUPROFEN
  15. MONTELUKAST SODIUM. [Concomitant]
     Active Substance: MONTELUKAST SODIUM
  16. OXYCODONE-ACETAMINOPHEN [Concomitant]
     Active Substance: ACETAMINOPHEN\OXYCODONE HYDROCHLORIDE
  17. SYMBICORT [Concomitant]
     Active Substance: BUDESONIDE\FORMOTEROL FUMARATE DIHYDRATE
  18. AFINITOR [Concomitant]
     Active Substance: EVEROLIMUS
  19. METOPROLOL-HYDROCHLOROTHIAZIDE [Concomitant]
  20. XARELTO [Concomitant]
     Active Substance: RIVAROXABAN
  21. GABAPENTIN. [Concomitant]
     Active Substance: GABAPENTIN
  22. LIQUID ANTACID [Concomitant]
  23. LORAZEPAM. [Concomitant]
     Active Substance: LORAZEPAM
  24. FLUOXETINE HCL [Concomitant]
     Active Substance: FLUOXETINE HYDROCHLORIDE
  25. JANUVIA [Concomitant]
     Active Substance: SITAGLIPTIN PHOSPHATE
  26. ONDANSETRON HCL [Concomitant]
     Active Substance: ONDANSETRON HYDROCHLORIDE
  27. DEXAMETHASONE. [Concomitant]
     Active Substance: DEXAMETHASONE
  28. OXYCONTIN [Concomitant]
     Active Substance: OXYCODONE HYDROCHLORIDE
  29. CHILDREN^S ALLERGY REL [Concomitant]
  30. GLIMEPIRIDE. [Concomitant]
     Active Substance: GLIMEPIRIDE
  31. LENVIMA [Suspect]
     Active Substance: LENVATINIB
     Route: 048
     Dates: start: 2019, end: 2019
  32. HYDROCODONE-ACETAMINOPHEN [Concomitant]
     Active Substance: ACETAMINOPHEN\HYDROCODONE
  33. PREDNISONE. [Concomitant]
     Active Substance: PREDNISONE
  34. LEVOFLOXACIN. [Concomitant]
     Active Substance: LEVOFLOXACIN
  35. GUAIFENESIN. [Concomitant]
     Active Substance: GUAIFENESIN
  36. LOSARTAN POTASSIUM. [Concomitant]
     Active Substance: LOSARTAN POTASSIUM

REACTIONS (12)
  - Malaise [Unknown]
  - Dry skin [Unknown]
  - Diarrhoea [Unknown]
  - Arthralgia [Unknown]
  - Cerebrovascular accident [Unknown]
  - Dehydration [Unknown]
  - Gastroenteritis viral [Unknown]
  - Hypertension [Not Recovered/Not Resolved]
  - Abdominal discomfort [Unknown]
  - Dry mouth [Unknown]
  - Vomiting [Unknown]
  - Sinusitis [Recovered/Resolved]

NARRATIVE: CASE EVENT DATE: 201712
